FAERS Safety Report 12890752 (Version 7)
Quarter: 2017Q3

REPORT INFORMATION
  Report Type: Spontaneous
  Country: US (occurrence: US)
  Receive Date: 20161027
  Receipt Date: 20170915
  Transmission Date: 20171127
  Serious: No
  Sender: FDA-Public Use
  Company Number: US-ACTELION-A-NJ2016-143120

PATIENT
  Age: 73 Year
  Sex: Male
  Weight: 116.55 kg

DRUGS (6)
  1. SILDENAFIL. [Concomitant]
     Active Substance: SILDENAFIL
  2. UPTRAVI [Suspect]
     Active Substance: SELEXIPAG
     Indication: PULMONARY HYPERTENSION
     Dosage: 600 MCG, BID
     Route: 048
     Dates: start: 20160922
  3. ADEMPAS [Concomitant]
     Active Substance: RIOCIGUAT
  4. COUMADIN [Concomitant]
     Active Substance: WARFARIN SODIUM
  5. UPTRAVI [Suspect]
     Active Substance: SELEXIPAG
     Dosage: 200 MCG, BID
     Route: 048
     Dates: start: 20160921
  6. UPTRAVI [Suspect]
     Active Substance: SELEXIPAG
     Dosage: 400 MCG, BID
     Route: 048
     Dates: end: 201708

REACTIONS (18)
  - Tongue haemorrhage [Not Recovered/Not Resolved]
  - Vision blurred [Unknown]
  - Diarrhoea [Unknown]
  - Photosensitivity reaction [Unknown]
  - Chest pain [Unknown]
  - Asthenia [Unknown]
  - Dyspepsia [Unknown]
  - Dizziness [Unknown]
  - Pain in jaw [Unknown]
  - Flatulence [Unknown]
  - Dyspnoea exertional [Unknown]
  - Headache [Unknown]
  - Tinnitus [Unknown]
  - Neck pain [Unknown]
  - Pain [Unknown]
  - Dyspnoea [Unknown]
  - Fatigue [Unknown]
  - Tongue injury [Not Recovered/Not Resolved]
